FAERS Safety Report 16384116 (Version 1)
Quarter: 2019Q2

REPORT INFORMATION
  Report Type: Spontaneous
  Country: US (occurrence: US)
  Receive Date: 20190426
  Receipt Date: 20190426
  Transmission Date: 20190711
  Serious: No
  Sender: FDA-Public Use
  Company Number: None

PATIENT
  Age: 36 Year
  Sex: Female

DRUGS (1)
  1. SOMATULINE DEPOT [Suspect]
     Active Substance: LANREOTIDE ACETATE
     Indication: NEUROENDOCRINE TUMOUR
     Dosage: ?          OTHER STRENGTH:120/0.5 MG/M;?
     Route: 058
     Dates: start: 201902, end: 201904

REACTIONS (5)
  - Abdominal pain upper [None]
  - Dizziness [None]
  - Nausea [None]
  - Vomiting [None]
  - Cold sweat [None]

NARRATIVE: CASE EVENT DATE: 201902
